FAERS Safety Report 17897600 (Version 1)
Quarter: 2020Q2

REPORT INFORMATION
  Report Type: Spontaneous
  Country: DE (occurrence: DE)
  Receive Date: 20200616
  Receipt Date: 20200616
  Transmission Date: 20200714
  Serious: Yes (Hospitalization)
  Sender: FDA-Public Use
  Company Number: DE-TEVA-2020-DE-1247723

PATIENT
  Age: 43 Year
  Sex: Male

DRUGS (5)
  1. PANTOPRAZOL [Concomitant]
     Active Substance: PANTOPRAZOLE SODIUM
     Dosage: 20 MILLIGRAM DAILY; 1-0-0-0
  2. XEPLION 100MG DEPOT-INJEKTIONSSUSPENSION [Suspect]
     Active Substance: PALIPERIDONE PALMITATE
     Dosage: 100 MG, EVERY
     Route: 030
  3. QUETIAPIN [Suspect]
     Active Substance: QUETIAPINE
     Dosage: 100 MG, NEED
  4. PIPAMPERON [Suspect]
     Active Substance: PIPAMPERONE HYDROCHLORIDE
     Dosage: 40 MG, NEED
  5. RISPERIDONE. [Suspect]
     Active Substance: RISPERIDONE
     Dosage: 1 MG, 2-0-1-1

REACTIONS (4)
  - General physical health deterioration [Unknown]
  - Pain [Unknown]
  - Fatigue [Unknown]
  - Electrolyte imbalance [Unknown]
